FAERS Safety Report 12621319 (Version 1)
Quarter: 2016Q3

REPORT INFORMATION
  Report Type: Spontaneous
  Country: US (occurrence: None)
  Receive Date: 20160803
  Receipt Date: 20160803
  Transmission Date: 20161109
  Serious: Yes (Disabling)
  Sender: FDA-Public Use
  Company Number: None

PATIENT
  Age: 66 Year
  Sex: Female
  Weight: 114.31 kg

DRUGS (5)
  1. BUPROPION XL 150MG TABLET, 150 MG ACTAVIS [Suspect]
     Active Substance: BUPROPION
     Indication: DEPRESSION
     Route: 048
     Dates: start: 20160627, end: 20160802
  2. VITAMIN D3 [Concomitant]
     Active Substance: CHOLECALCIFEROL
  3. L-THYROXINE [Concomitant]
     Active Substance: LEVOTHYROXINE
  4. FLAX OIL [Concomitant]
  5. VITAMIN B COMPLEX [Concomitant]
     Active Substance: CYANOCOBALAMIN\DEXPANTHENOL\NIACINAMIDE\PYRIDOXINE HYDROCHLORIDE\RIBOFLAVIN 5^-PHOSPHATE SODIUM\THIAMINE HYDROCHLORIDE\VITAMIN B COMPLEX

REACTIONS (1)
  - Myalgia [None]

NARRATIVE: CASE EVENT DATE: 20160715
